FAERS Safety Report 10330610 (Version 3)
Quarter: 2014Q3

REPORT INFORMATION
  Report Type: Spontaneous
  Country: DE (occurrence: DE)
  Receive Date: 20140722
  Receipt Date: 20140820
  Transmission Date: 20150326
  Serious: Yes (Other)
  Sender: FDA-Public Use
  Company Number: DE-UCBSA-2014003466

PATIENT
  Age: 73 Year
  Sex: Female
  Weight: 68 kg

DRUGS (3)
  1. PANTOPRAZOLE [Concomitant]
     Active Substance: PANTOPRAZOLE SODIUM
     Dosage: 40 MG, ONCE DAILY (QD)
  2. LYRICA [Concomitant]
     Active Substance: PREGABALIN
     Dosage: 25 MG, ONCE DAILY (QD)
  3. NEUPRO [Suspect]
     Active Substance: ROTIGOTINE
     Indication: RESTLESS LEGS SYNDROME
     Dosage: 2 MG, ONCE DAILY (QD)
     Route: 062
     Dates: start: 201308

REACTIONS (3)
  - Hypersensitivity [Not Recovered/Not Resolved]
  - Application site discolouration [Not Recovered/Not Resolved]
  - Pruritus [Not Recovered/Not Resolved]

NARRATIVE: CASE EVENT DATE: 201402
